FAERS Safety Report 7488241-0 (Version None)
Quarter: 2011Q2

REPORT INFORMATION
  Report Type: 
  Country: None (occurrence: None)
  Receive Date: 20110511
  Receipt Date: 20110426
  Transmission Date: 20111010
  Serious: No
  Sender: FDA-Public Use
  Company Number: 2011AT000140

PATIENT
  Age: 52 Year
  Sex: Male

DRUGS (1)
  1. EDEX [Suspect]
     Indication: ERECTILE DYSFUNCTION
     Dosage: 10 UG; ICAN
     Dates: start: 20110224

REACTIONS (3)
  - PREGNANCY OF PARTNER [None]
  - DRUG EXPOSURE DURING PREGNANCY [None]
  - ECTOPIC PREGNANCY [None]
